APPROVED DRUG PRODUCT: NOCTIVA
Active Ingredient: DESMOPRESSIN ACETATE
Strength: 0.00166MG/SPRAY
Dosage Form/Route: SPRAY, METERED;NASAL
Application: N201656 | Product #002
Applicant: ACERUS PHARMACEUTICALS USA LLC
Approved: Mar 3, 2017 | RLD: Yes | RS: No | Type: DISCN

PATENTS:
Patent 11419914 | Expires: Jun 15, 2030
Patent 12090190 | Expires: Jun 15, 2030
Patent 9539302 | Expires: Jun 15, 2030